FAERS Safety Report 4627152-2 (Version None)
Quarter: 2005Q2

REPORT INFORMATION
  Report Type: 
  Country: None (occurrence: None)
  Receive Date: 20050405
  Receipt Date: 20050302
  Transmission Date: 20051028
  Serious: Yes (Hospitalization)
  Sender: FDA-Public Use
  Company Number: JP-GLAXOSMITHKLINE-B0373641A

PATIENT
  Age: 62 Year
  Sex: Male
  Weight: 51 kg

DRUGS (7)
  1. VALTREX [Suspect]
     Indication: HERPES ZOSTER
     Dosage: 1000MG PER DAY
     Route: 048
     Dates: start: 20050222
  2. MUCOSTA [Concomitant]
     Dosage: 100MG THREE TIMES PER DAY
     Route: 048
  3. KAYEXALATE [Concomitant]
     Dosage: 5G PER DAY
     Route: 048
  4. ACINON [Concomitant]
     Dosage: 150MG PER DAY
     Route: 048
  5. THEO-DUR [Concomitant]
     Dosage: 200MG TWICE PER DAY
     Route: 048
  6. RISUMIC [Concomitant]
     Dosage: 10MG TWICE PER DAY
     Route: 048
  7. NE-KOTANI [Concomitant]
     Dosage: 300MG PER DAY
     Route: 048

REACTIONS (8)
  - COMMUNICATION DISORDER [None]
  - DEPRESSED LEVEL OF CONSCIOUSNESS [None]
  - DYSSTASIA [None]
  - ORAL INTAKE REDUCED [None]
  - PNEUMONIA [None]
  - PNEUMONIA ASPIRATION [None]
  - RESTLESSNESS [None]
  - SOMNOLENCE [None]
